FAERS Safety Report 6178487-6 (Version None)
Quarter: 2009Q2

REPORT INFORMATION
  Report Type: 
  Country: None (occurrence: None)
  Receive Date: 20090430
  Receipt Date: 20090421
  Transmission Date: 20091009
  Serious: Yes (Life-Threatening, Hospitalization)
  Sender: FDA-Public Use
  Company Number: 2009-01167

PATIENT
  Age: 53 Year
  Sex: Female
  Weight: 95 kg

DRUGS (5)
  1. VELCADE [Suspect]
     Indication: MULTIPLE MYELOMA
     Dosage: 1.3 MG/M2, SUBCUTANEOUS
     Route: 058
     Dates: start: 20090210, end: 20090313
  2. DICLOFENAC (DICLOFENAC) [Concomitant]
  3. ZOMETA [Concomitant]
  4. COAXIL (TIANEPTINE) [Concomitant]
  5. TRAMADOL HYDROHLORIDE [Concomitant]

REACTIONS (7)
  - ASTHMA [None]
  - BRONCHITIS CHRONIC [None]
  - HAEMOGLOBIN DECREASED [None]
  - LEFT VENTRICULAR FAILURE [None]
  - NO THERAPEUTIC RESPONSE [None]
  - PULMONARY HYPERTENSION [None]
  - PULMONARY OEDEMA [None]
